FAERS Safety Report 7687743-1 (Version None)
Quarter: 2011Q3

REPORT INFORMATION
  Report Type: 
  Country: None (occurrence: None)
  Receive Date: 20110817
  Receipt Date: 20110805
  Transmission Date: 20111222
  Serious: No
  Sender: FDA-Public Use
  Company Number: US-JNJFOC-20110804345

PATIENT
  Sex: Female
  Weight: 64.86 kg

DRUGS (1)
  1. DURAGESIC-100 [Suspect]
     Indication: HEADACHE
     Route: 062
     Dates: start: 20060101

REACTIONS (2)
  - PRODUCT QUALITY ISSUE [None]
  - DRUG DOSE OMISSION [None]
